FAERS Safety Report 20411820 (Version 1)
Quarter: 2022Q1

REPORT INFORMATION
  Report Type: Spontaneous
  Country: US (occurrence: US)
  Receive Date: 20220201
  Receipt Date: 20220201
  Transmission Date: 20220423
  Serious: No
  Sender: FDA-Public Use
  Company Number: US-TEVA-2022-US-2004059

PATIENT

DRUGS (1)
  1. PACLITAXEL [Suspect]
     Active Substance: PACLITAXEL
     Dosage: 300 MG / 50 ML
     Route: 065

REACTIONS (3)
  - Flushing [Recovered/Resolved]
  - Product quality issue [Unknown]
  - Erythema [Recovered/Resolved]
